FAERS Safety Report 13943857 (Version 9)
Quarter: 2021Q3

REPORT INFORMATION
  Report Type: Spontaneous
  Country: US (occurrence: US)
  Receive Date: 20170907
  Receipt Date: 20210820
  Transmission Date: 20211014
  Serious: Yes (Hospitalization, Other)
  Sender: FDA-Public Use
  Company Number: US-BIOGEN-2017BI00454527

PATIENT
  Age: 19 Year
  Sex: Male

DRUGS (7)
  1. FOCALIN [Concomitant]
     Active Substance: DEXMETHYLPHENIDATE HYDROCHLORIDE
     Indication: PRODUCT USED FOR UNKNOWN INDICATION
     Route: 050
  2. TYSABRI [Suspect]
     Active Substance: NATALIZUMAB
     Indication: MULTIPLE SCLEROSIS
     Dosage: INFUSED OVER ONE HOUR
     Route: 050
     Dates: start: 20160429
  3. TYSABRI [Suspect]
     Active Substance: NATALIZUMAB
     Route: 050
     Dates: start: 20170209
  4. NEURONTIN [Concomitant]
     Active Substance: GABAPENTIN
     Indication: PRODUCT USED FOR UNKNOWN INDICATION
     Route: 050
  5. CONCERTA [Concomitant]
     Active Substance: METHYLPHENIDATE HYDROCHLORIDE
     Indication: PRODUCT USED FOR UNKNOWN INDICATION
     Route: 050
  6. METHYLPHENIDATE. [Concomitant]
     Active Substance: METHYLPHENIDATE
     Indication: PRODUCT USED FOR UNKNOWN INDICATION
     Route: 050
  7. VITAMIN D3 [Concomitant]
     Active Substance: CHOLECALCIFEROL
     Indication: PRODUCT USED FOR UNKNOWN INDICATION
     Route: 050

REACTIONS (9)
  - Multiple sclerosis [Recovered/Resolved]
  - Product dose omission issue [Recovered/Resolved]
  - Cerebral haemorrhage [Recovered/Resolved with Sequelae]
  - Pyrexia [Recovered/Resolved]
  - Vomiting [Recovered/Resolved]
  - Headache [Recovered/Resolved]
  - Amnesia [Recovered/Resolved]
  - Hypersomnia [Recovered/Resolved]
  - Intracranial mass [Unknown]

NARRATIVE: CASE EVENT DATE: 201608
